FAERS Safety Report 5810341-9 (Version None)
Quarter: 2008Q3

REPORT INFORMATION
  Report Type: 
  Country: None (occurrence: None)
  Receive Date: 20080715
  Receipt Date: 20080505
  Transmission Date: 20090109
  Serious: No
  Sender: FDA-Public Use
  Company Number: A0726176A

PATIENT
  Age: 41 Year
  Sex: Female
  Weight: 38.6 kg

DRUGS (9)
  1. IMITREX [Suspect]
     Indication: MIGRAINE
     Dosage: 100MG FIVE TIMES PER DAY
     Route: 048
     Dates: start: 19970101, end: 20080421
  2. TOPAMAX [Concomitant]
     Dosage: 50MG TWICE PER DAY
  3. UNKNOWN MEDICATION [Concomitant]
     Dosage: .2MG THREE TIMES PER DAY
  4. PROPRANOLOL [Concomitant]
     Dosage: 10MG TEN TIMES PER DAY
  5. PROMETHAZINE [Concomitant]
     Dosage: 25MG SIX TIMES PER DAY
  6. MIRTAZAPINE [Concomitant]
     Dosage: 15MG AT NIGHT
  7. ALBUTEROL [Concomitant]
     Dosage: 4PUFF PER DAY
  8. UNKNOWN MEDICATION [Concomitant]
  9. PERCOCET [Concomitant]
     Indication: MIGRAINE

REACTIONS (4)
  - ARTHROPATHY [None]
  - DRUG INEFFECTIVE [None]
  - PHARMACEUTICAL PRODUCT COMPLAINT [None]
  - VOMITING [None]
